FAERS Safety Report 15818339 (Version 2)
Quarter: 2019Q2

REPORT INFORMATION
  Report Type: Spontaneous
  Country: US (occurrence: US)
  Receive Date: 20190113
  Receipt Date: 20190430
  Transmission Date: 20190711
  Serious: Yes (Other)
  Sender: FDA-Public Use
  Company Number: US-COOPERSURGICAL, INC.-US-2018CPS021512

PATIENT

DRUGS (1)
  1. PARAGARD T 380A [Suspect]
     Active Substance: COPPER
     Indication: CONTRACEPTION
     Dosage: UNK
     Route: 015
     Dates: start: 20100208, end: 20171002

REACTIONS (21)
  - Injury [Not Recovered/Not Resolved]
  - Metrorrhagia [Unknown]
  - Device defective [Unknown]
  - Abdominal pain lower [Unknown]
  - Device material issue [Unknown]
  - Menometrorrhagia [Unknown]
  - Adverse event [Not Recovered/Not Resolved]
  - Vaginal discharge [Unknown]
  - Device breakage [Not Recovered/Not Resolved]
  - Anxiety [Unknown]
  - Loss of personal independence in daily activities [Not Recovered/Not Resolved]
  - Pain [Unknown]
  - Dyspareunia [Unknown]
  - Dysmenorrhoea [Unknown]
  - Depression [Unknown]
  - Economic problem [Not Recovered/Not Resolved]
  - Foreign body in reproductive tract [Unknown]
  - Fatigue [Unknown]
  - Palpitations [Unknown]
  - Emotional distress [Not Recovered/Not Resolved]
  - Procedural pain [Unknown]

NARRATIVE: CASE EVENT DATE: 20171002
